FAERS Safety Report 17191812 (Version 1)
Quarter: 2020Q1

REPORT INFORMATION
  Report Type: Spontaneous
  Country: US (occurrence: US)
  Receive Date: 20191222
  Receipt Date: 20191222
  Transmission Date: 20200409
  Serious: Yes (Life-Threatening)
  Sender: FDA-Public Use
  Company Number: None

PATIENT
  Age: 56 Year
  Sex: Male
  Weight: 84.2 kg

DRUGS (4)
  1. KEYTRUDA [Suspect]
     Active Substance: PEMBROLIZUMAB
     Indication: RENAL CELL CARCINOMA
     Dates: start: 20191010, end: 20191211
  2. ATORVASTATIN 20MG [Concomitant]
     Active Substance: ATORVASTATIN
  3. ASPIRIN 81MG [Concomitant]
     Active Substance: ASPIRIN
  4. INLYTA [Concomitant]
     Active Substance: AXITINIB

REACTIONS (1)
  - Diabetic ketoacidosis [None]

NARRATIVE: CASE EVENT DATE: 20191217
